FAERS Safety Report 9201234 (Version 1)
Quarter: 2013Q2

REPORT INFORMATION
  Report Type: Spontaneous
  Country: US (occurrence: US)
  Receive Date: 20130401
  Receipt Date: 20130401
  Transmission Date: 20140414
  Serious: Yes (Other)
  Sender: FDA-Public Use
  Company Number: PHEH2013US007208

PATIENT
  Sex: Female

DRUGS (3)
  1. DIOVAN [Suspect]
     Indication: HYPERTENSION
     Dosage: 160 MG, QD
     Route: 048
  2. TRAMADOL [Concomitant]
     Dosage: UNK UKN, UNK
  3. SINGULAIR [Concomitant]
     Dosage: UNK UKN, UNK

REACTIONS (1)
  - Hearing impaired [Unknown]
